FAERS Safety Report 7782501-1 (Version None)
Quarter: 2011Q3

REPORT INFORMATION
  Report Type: 
  Country: None (occurrence: None)
  Receive Date: 20110928
  Receipt Date: 20110922
  Transmission Date: 20111222
  Serious: Yes (Hospitalization, Other)
  Sender: FDA-Public Use
  Company Number: US-AMGEN-USASP2011014106

PATIENT
  Age: 65 Year
  Sex: Male

DRUGS (1)
  1. NPLATE [Suspect]
     Indication: IDIOPATHIC THROMBOCYTOPENIC PURPURA
     Dosage: 1 MUG/KG, UNK
     Dates: start: 20100827, end: 20100917

REACTIONS (6)
  - DUODENAL ULCER PERFORATION [None]
  - HALLUCINATION [None]
  - PLATELET COUNT ABNORMAL [None]
  - PNEUMONIA [None]
  - GASTROINTESTINAL DISORDER [None]
  - MALAISE [None]
